FAERS Safety Report 6634268-8 (Version None)
Quarter: 2010Q1

REPORT INFORMATION
  Report Type: 
  Country: None (occurrence: None)
  Receive Date: 20100212
  Receipt Date: 20100212
  Transmission Date: 20100710
  Serious: Yes (Other)
  Sender: FDA-Public Use
  Company Number: None

PATIENT
  Sex: Female
  Weight: 64.8644 kg

DRUGS (1)
  1. MIRTAZAPINE [Suspect]
     Indication: ANXIETY
     Dosage: 1/2 TAB @ BEDTIME 1/DA (DURATION: FIRST TIME 3 WKS. SECOND TIME 1 DA.

REACTIONS (4)
  - AMNESIA [None]
  - ARTHRALGIA [None]
  - CONFUSIONAL STATE [None]
  - DEPRESSION [None]
